FAERS Safety Report 7685022-X (Version None)
Quarter: 2011Q3

REPORT INFORMATION
  Report Type: 
  Country: None (occurrence: None)
  Receive Date: 20110816
  Receipt Date: 20110804
  Transmission Date: 20111222
  Serious: Yes (Other)
  Sender: FDA-Public Use
  Company Number: DE-JNJFOC-20110603475

PATIENT
  Sex: Male
  Weight: 90 kg

DRUGS (4)
  1. ESSENTIALE FORTE [Concomitant]
     Route: 048
  2. STELARA [Suspect]
     Indication: PSORIASIS
     Route: 058
     Dates: start: 20110320
  3. STELARA [Suspect]
     Route: 058
     Dates: start: 20110425
  4. PHYTOTHERAPEUTIC DRUG FOR WEIGHT LOSS [Concomitant]
     Indication: WEIGHT DECREASED
     Route: 048

REACTIONS (2)
  - ERYTHEMA MULTIFORME [None]
  - PURPURA [None]
